FAERS Safety Report 6754685-5 (Version None)
Quarter: 2010Q2

REPORT INFORMATION
  Report Type: 
  Country: None (occurrence: None)
  Receive Date: 20100524
  Receipt Date: 20100317
  Transmission Date: 20101027
  Serious: No
  Sender: FDA-Public Use
  Company Number: 009163

PATIENT
  Sex: Female

DRUGS (2)
  1. CIMZIA [Suspect]
     Indication: CROHN'S DISEASE
     Dosage: 400 MG 1X/MONTH SUBCUTANEOUS, 400 MG 1X/MONTH SUBCUTANEOUS
     Route: 058
     Dates: start: 20091112, end: 20100310
  2. CIMZIA [Suspect]
     Indication: CROHN'S DISEASE
     Dosage: 400 MG 1X/MONTH SUBCUTANEOUS, 400 MG 1X/MONTH SUBCUTANEOUS
     Route: 058
     Dates: start: 20100317

REACTIONS (1)
  - NASOPHARYNGITIS [None]
